FAERS Safety Report 4861205-9 (Version None)
Quarter: 2005Q4

REPORT INFORMATION
  Report Type: 
  Country: None (occurrence: None)
  Receive Date: 20051216
  Receipt Date: 20051209
  Transmission Date: 20060501
  Serious: Yes (Hospitalization, Disabling, Other)
  Sender: FDA-Public Use
  Company Number: 2005-CZ-01351

PATIENT
  Age: 41 Year
  Sex: Female

DRUGS (1)
  1. BACLOFEN [Suspect]
     Dosage: 15 ML, 3 IN 1 D, ORAL
     Route: 048
     Dates: start: 20021122, end: 20051115

REACTIONS (4)
  - CONDITION AGGRAVATED [None]
  - DELUSION [None]
  - FRIEDREICH'S ATAXIA [None]
  - PSYCHOTIC DISORDER [None]
